FAERS Safety Report 21523525 (Version 1)
Quarter: 2022Q4

REPORT INFORMATION
  Report Type: Report from Study
  Country: CA (occurrence: CA)
  Receive Date: 20221029
  Receipt Date: 20221029
  Transmission Date: 20230112
  Serious: Yes (Other)
  Sender: FDA-Public Use
  Company Number: None

PATIENT
  Age: 49 Year
  Sex: Female

DRUGS (4)
  1. METHOTREXATE [Suspect]
     Active Substance: METHOTREXATE
     Indication: Product used for unknown indication
     Route: 058
  2. HUMIRA [Concomitant]
     Active Substance: ADALIMUMAB
     Dosage: 1 EVERY 1 MONTHS
     Route: 058
  3. SORIATANE [Concomitant]
     Active Substance: ACITRETIN
     Route: 065
  4. TALTZ [Concomitant]
     Active Substance: IXEKIZUMAB
     Route: 058

REACTIONS (3)
  - Diabetes mellitus [Unknown]
  - Illness [Unknown]
  - Skin disorder [Unknown]
